FAERS Safety Report 6713188-4 (Version None)
Quarter: 2010Q2

REPORT INFORMATION
  Report Type: 
  Country: None (occurrence: None)
  Receive Date: 20100506
  Receipt Date: 20100423
  Transmission Date: 20101027
  Serious: Yes (Other)
  Sender: FDA-Public Use
  Company Number: PHHY2009CA16503

PATIENT
  Sex: Female

DRUGS (2)
  1. CLOZARIL [Suspect]
     Dosage: UNK
     Dates: start: 19941108
  2. TAMOXIFEN CITRATE [Concomitant]
     Dosage: 20 MG, UNK

REACTIONS (2)
  - BREAST CANCER [None]
  - RADIOTHERAPY [None]
